FAERS Safety Report 21907003 (Version 1)
Quarter: 2023Q1

REPORT INFORMATION
  Report Type: Other
  Country: US (occurrence: None)
  Receive Date: 20230125
  Receipt Date: 20230125
  Transmission Date: 20230417
  Serious: Yes (Hospitalization)
  Sender: FDA-Public Use
  Company Number: US-ROCHE-3268080

PATIENT
  Age: 16 Year
  Sex: Male

DRUGS (2)
  1. RITUXIMAB [Suspect]
     Active Substance: RITUXIMAB
     Indication: Immune thrombocytopenia
     Dosage: TWO DOSES
     Route: 065
     Dates: start: 2015
  2. METHYLPREDNISOLONE [Concomitant]
     Active Substance: METHYLPREDNISOLONE

REACTIONS (6)
  - Haemophilus sepsis [Unknown]
  - Pleural effusion [Unknown]
  - Bacterial pericarditis [Unknown]
  - Pericardial effusion [Unknown]
  - Hypotension [Unknown]
  - Hypogammaglobulinaemia [Unknown]
